FAERS Safety Report 14171821 (Version 2)
Quarter: 2018Q1

REPORT INFORMATION
  Report Type: Spontaneous
  Country: FR (occurrence: FR)
  Receive Date: 20171108
  Receipt Date: 20180207
  Transmission Date: 20180508
  Serious: Yes (Death)
  Sender: FDA-Public Use
  Company Number: FR-ALLERGAN-1763697US

PATIENT
  Age: 76 Year
  Sex: Female
  Weight: 80 kg

DRUGS (25)
  1. ALPRAZOLAM. [Concomitant]
     Active Substance: ALPRAZOLAM
     Dosage: 0.25 UNK, BID
  2. BOTOX [Suspect]
     Active Substance: ONABOTULINUMTOXINA
     Indication: POLLAKIURIA
  3. OXYCODONE [Concomitant]
     Active Substance: OXYCODONE
     Dosage: 5 UNK, Q6HR
  4. CITALOPRAM [Concomitant]
     Active Substance: CITALOPRAM HYDROBROMIDE
     Dosage: 20 UNK, QAM
  5. METFORMIN [Concomitant]
     Active Substance: METFORMIN HYDROCHLORIDE
     Indication: TYPE 2 DIABETES MELLITUS
     Dosage: 350 MG, QPM
     Route: 065
  6. LYRICA [Concomitant]
     Active Substance: PREGABALIN
     Indication: PAIN
     Dosage: 2 DF, UNK
  7. DOLIPRANE [Concomitant]
     Active Substance: ACETAMINOPHEN
     Dosage: 1 DF, Q6HR
  8. LAROXYL [Concomitant]
     Active Substance: AMITRIPTYLINE HYDROCHLORIDE
     Dosage: UNK, QPM
  9. GLIMEL [Concomitant]
     Dosage: 1.5 L, QD
  10. BOTOX [Suspect]
     Active Substance: ONABOTULINUMTOXINA
     Indication: BLADDER PAIN
  11. BOTOX [Suspect]
     Active Substance: ONABOTULINUMTOXINA
     Indication: MICTURITION URGENCY
     Dosage: 100 UNITS, SINGLE
     Route: 043
     Dates: start: 20170707, end: 20170707
  12. VICTOZA [Concomitant]
     Active Substance: LIRAGLUTIDE
     Indication: TYPE 2 DIABETES MELLITUS
     Dosage: 1.2 MG, QAM
     Route: 065
  13. ACTISKENAN [Concomitant]
     Active Substance: MORPHINE SULFATE
     Dosage: 5 UNK, PRN, EVERY 6 HOURS
  14. BOTOX [Suspect]
     Active Substance: ONABOTULINUMTOXINA
     Indication: NOCTURIA
  15. PANTOPRAZOLE [Concomitant]
     Active Substance: PANTOPRAZOLE
     Dosage: 40 UNK, QPM
  16. IMOVANE [Concomitant]
     Active Substance: ZOPICLONE
     Dosage: 3.75 UNK, UNK
  17. LOVENOX [Concomitant]
     Active Substance: ENOXAPARIN SODIUM
     Dosage: 400, QHS
  18. PARACETAMOL [Concomitant]
     Active Substance: ACETAMINOPHEN
     Dosage: 1 G, Q6HR
  19. SPASFON [Concomitant]
     Active Substance: PHLOROGLUCINOL\1,3,5-TRIMETHOXYBENZENE
     Dosage: UNK
  20. VANCOMYCIN [Concomitant]
     Active Substance: VANCOMYCIN
     Dosage: UNK UNK, BID
  21. BOTOX [Suspect]
     Active Substance: ONABOTULINUMTOXINA
     Indication: URETHRAL SYNDROME
  22. VESICARE [Concomitant]
     Active Substance: SOLIFENACIN SUCCINATE
     Indication: PAIN
  23. TRAMADOL. [Concomitant]
     Active Substance: TRAMADOL
     Indication: PAIN
  24. XATRAL [Concomitant]
     Active Substance: ALFUZOSIN
     Dosage: 2.5 UNK, MORNING AND EVENING
  25. ISOPHANE INSULIN [Concomitant]
     Active Substance: INSULIN NOS
     Dosage: 30 UNITS NMORNING, 24 UNITS EVENING

REACTIONS (2)
  - Off label use [Unknown]
  - Sepsis [Fatal]
